FAERS Safety Report 9341385 (Version 1)
Quarter: 2013Q2

REPORT INFORMATION
  Report Type: Spontaneous
  Country: US (occurrence: US)
  Receive Date: 20130611
  Receipt Date: 20130611
  Transmission Date: 20140414
  Serious: Yes (Other)
  Sender: FDA-Public Use
  Company Number: US-JNJFOC-20130600179

PATIENT
  Age: 20 Year
  Sex: Male

DRUGS (1)
  1. XARELTO [Suspect]
     Indication: FACTOR V DEFICIENCY
     Route: 048

REACTIONS (1)
  - Pulmonary embolism [Unknown]
